FAERS Safety Report 9115401 (Version 1)
Quarter: 2013Q1

REPORT INFORMATION
  Report Type: Spontaneous
  Country: US (occurrence: None)
  Receive Date: 20130221
  Receipt Date: 20130221
  Transmission Date: 20140127
  Serious: Yes (Hospitalization)
  Sender: FDA-Public Use
  Company Number: None

PATIENT
  Age: 67 Year
  Sex: Male
  Weight: 87.9 kg

DRUGS (3)
  1. PANOBINOSTAT [Suspect]
     Indication: MANTLE CELL LYMPHOMA
     Dosage: 15 MG M-W-F- QOW, PO
     Route: 048
     Dates: start: 20121105, end: 20130118
  2. VELCADE [Concomitant]
  3. ACYCLOVIR [Concomitant]

REACTIONS (1)
  - Bacteraemia [None]
